FAERS Safety Report 9834131 (Version 2)
Quarter: 2014Q1

REPORT INFORMATION
  Report Type: Spontaneous
  Country: ES (occurrence: ES)
  Receive Date: 20140122
  Receipt Date: 20140127
  Transmission Date: 20141002
  Serious: Yes (Hospitalization, Disabling)
  Sender: FDA-Public Use
  Company Number: ES-UCBSA-108924

PATIENT
  Age: 49 Year
  Sex: Female

DRUGS (5)
  1. CIMZIA [Suspect]
     Dosage: RECEIVED 1 DOSE
     Route: 058
  2. LEFLUNOMIDE [Suspect]
     Dosage: RECEIVED 1 DOSE
     Route: 048
  3. ROSUVASTATIN [Concomitant]
     Route: 048
  4. NEVIBOLOL [Concomitant]
     Route: 048
  5. CALCIUM + VITAMIN D [Concomitant]
     Route: 048

REACTIONS (4)
  - Pneumonia legionella [Recovering/Resolving]
  - Septic shock [Recovering/Resolving]
  - Peripheral ischaemia [Recovering/Resolving]
  - Multi-organ failure [Recovering/Resolving]
